FAERS Safety Report 6466566-5 (Version None)
Quarter: 2009Q4

REPORT INFORMATION
  Report Type: 
  Country: None (occurrence: None)
  Receive Date: 20091127
  Receipt Date: 20091116
  Transmission Date: 20100525
  Serious: Yes (Hospitalization)
  Sender: FDA-Public Use
  Company Number: FABR-1001070

PATIENT
  Age: 60 Year
  Sex: Male
  Weight: 110 kg

DRUGS (1)
  1. FABRAZYME [Suspect]
     Indication: FABRY'S DISEASE
     Dosage: 110 MG, Q2W, INTRAVENOUS
     Route: 042
     Dates: start: 20050101

REACTIONS (5)
  - BLOOD CULTURE POSITIVE [None]
  - CELLULITIS [None]
  - CHILLS [None]
  - FALL [None]
  - PYREXIA [None]
